FAERS Safety Report 25847365 (Version 1)
Quarter: 2025Q3

REPORT INFORMATION
  Report Type: Spontaneous
  Country: US (occurrence: None)
  Receive Date: 20250923
  Receipt Date: 20250923
  Transmission Date: 20251021
  Serious: Yes (Hospitalization)
  Sender: FDA-CTU
  Company Number: None

PATIENT
  Sex: Female

DRUGS (4)
  1. TACROLIMUS [Suspect]
     Active Substance: TACROLIMUS
     Indication: Heart transplant
     Dosage: 6 MG TWICE A DAY ORAL
     Route: 048
     Dates: start: 20250322
  2. TACROLIMUS [Suspect]
     Active Substance: TACROLIMUS
     Indication: Immunodeficiency
  3. EVEROLIMUS [Suspect]
     Active Substance: EVEROLIMUS
     Dosage: 0.75 MG TWICE A DAY ORAL
     Route: 048
     Dates: start: 20250510
  4. NIVESTYM [Concomitant]
     Active Substance: FILGRASTIM-AAFI

REACTIONS (1)
  - Ear infection [None]
